FAERS Safety Report 6201026-8 (Version None)
Quarter: 2009Q2

REPORT INFORMATION
  Report Type: 
  Country: None (occurrence: None)
  Receive Date: 20090526
  Receipt Date: 20090518
  Transmission Date: 20091009
  Serious: Yes (Other)
  Sender: FDA-Public Use
  Company Number: US-ELI_LILLY_AND_COMPANY-US200903005030

PATIENT
  Sex: Female

DRUGS (5)
  1. HUMALOG [Suspect]
     Dates: start: 19960101
  2. LANTUS [Concomitant]
  3. GLUCOPHAGE [Concomitant]
  4. PLAVIX [Concomitant]
  5. PRILOSEC [Concomitant]

REACTIONS (7)
  - BLINDNESS UNILATERAL [None]
  - CATARACT [None]
  - CORNEAL OPACITY [None]
  - EYE HAEMORRHAGE [None]
  - OPTIC NERVE INJURY [None]
  - VISION BLURRED [None]
  - VISUAL IMPAIRMENT [None]
